FAERS Safety Report 23646845 (Version 4)
Quarter: 2024Q3

REPORT INFORMATION
  Report Type: Spontaneous
  Country: CA (occurrence: CA)
  Receive Date: 20240319
  Receipt Date: 20240912
  Transmission Date: 20241017
  Serious: Yes (Death, Hospitalization, Other)
  Sender: NOVARTIS
  Company Number: CA-002147023-NVSC2024CA055198

PATIENT
  Age: 60 Year
  Sex: Female

DRUGS (8)
  1. AFINITOR [Suspect]
     Active Substance: EVEROLIMUS
     Indication: Carcinoid syndrome
     Dosage: UNK
     Route: 065
  2. LANREOTIDE ACETATE [Suspect]
     Active Substance: LANREOTIDE ACETATE
     Indication: Gastroenteropancreatic neuroendocrine tumour disease
     Dosage: 120 MG, Q4W (AUTOGEL PRE-FILLED SYRINGE)
     Route: 058
  3. LANREOTIDE ACETATE [Suspect]
     Active Substance: LANREOTIDE ACETATE
     Dosage: 120 MG, Q4W (AUTOGEL PRE-FILLED SYRINGE)
     Route: 058
  4. LANREOTIDE ACETATE [Suspect]
     Active Substance: LANREOTIDE ACETATE
     Dosage: 120 MG, Q4W (AUTOGEL PRE-FILLED SYRINGE) (DURATION: -37.0)
     Route: 058
  5. LANREOTIDE ACETATE [Suspect]
     Active Substance: LANREOTIDE ACETATE
     Indication: Gastroenteropancreatic neuroendocrine tumour disease
     Dosage: 120 MG, Q2W
     Route: 058
  6. LANREOTIDE ACETATE [Suspect]
     Active Substance: LANREOTIDE ACETATE
     Dosage: 120 MG, Q4W
     Route: 058
  7. LANREOTIDE ACETATE [Suspect]
     Active Substance: LANREOTIDE ACETATE
     Indication: Gastroenteropancreatic neuroendocrine tumour disease
     Dosage: 120 MG, Q4W (DURATION: -37.0)
     Route: 058
  8. FAMOTIDINE [Concomitant]
     Active Substance: FAMOTIDINE
     Indication: Product used for unknown indication
     Dosage: UNK
     Route: 065

REACTIONS (8)
  - Death [Fatal]
  - Chest pain [Fatal]
  - Gait disturbance [Fatal]
  - Malignant neoplasm progression [Fatal]
  - Symptom recurrence [Fatal]
  - Pain [Fatal]
  - Intercepted product storage error [Fatal]
  - Off label use [Fatal]
